FAERS Safety Report 8938264 (Version 2)
Quarter: 2012Q4

REPORT INFORMATION
  Report Type: 
  Country: US (occurrence: US)
  Receive Date: 20121130
  Receipt Date: 20121227
  Transmission Date: 20130627
  Serious: No
  Sender: FDA-Public Use
  Company Number: US-ASTRAZENECA-2012SE87160

PATIENT
  Age: 22869 Day
  Sex: Male

DRUGS (3)
  1. SEROQUEL XR [Suspect]
     Indication: BIPOLAR I DISORDER
     Route: 048
     Dates: start: 20121107
  2. WELLBUTRIN [Concomitant]
     Indication: DEPRESSION
  3. PROZAC [Concomitant]
     Indication: DEPRESSION

REACTIONS (3)
  - Sensory disturbance [Unknown]
  - Gait disturbance [Recovering/Resolving]
  - Tremor [Recovering/Resolving]
